FAERS Safety Report 4664724-3 (Version None)
Quarter: 2005Q2

REPORT INFORMATION
  Report Type: 
  Country: None (occurrence: None)
  Receive Date: 20050516
  Receipt Date: 20050503
  Transmission Date: 20051028
  Serious: Yes (Death, Hospitalization, Other)
  Sender: FDA-Public Use
  Company Number: 2005055638

PATIENT
  Age: 62 Year
  Sex: Male

DRUGS (6)
  1. LYRICA [Suspect]
     Indication: NEUROPATHIC PAIN
     Dosage: 150 MG (75 MG, 2 IN 1 D), ORAL
     Route: 048
     Dates: start: 20050202, end: 20050314
  2. OXYCODONE HCL [Concomitant]
  3. NIMESULIDE (NIMESULIDE) [Concomitant]
  4. CODEINE PHOSPHATE AND ACETAMINOPHEN [Concomitant]
  5. ZOLEDRONIC ACID (ZOLEDRONIC ACID) [Concomitant]
  6. ANTIINFLAMMATORY/ANTIRHEUMATIC NON-SETROIDS (ANTIINFLAMMATORY/ANTIRHEU [Concomitant]

REACTIONS (6)
  - CONFUSIONAL STATE [None]
  - DISEASE PROGRESSION [None]
  - EYE PAIN [None]
  - NAUSEA [None]
  - PAIN [None]
  - RENAL IMPAIRMENT [None]
